FAERS Safety Report 15061886 (Version 2)
Quarter: 2018Q3

REPORT INFORMATION
  Report Type: Spontaneous
  Country: DE (occurrence: DE)
  Receive Date: 20180625
  Receipt Date: 20180803
  Transmission Date: 20181010
  Serious: Yes (Other)
  Sender: FDA-Public Use
  Company Number: DE-MYLANLABS-2018M1043612

PATIENT
  Age: 44 Year
  Sex: Female
  Weight: 75 kg

DRUGS (3)
  1. AMOXICILLIN TRIHYDRATE AND POTASSIUM CLAVULAN [Suspect]
     Active Substance: AMOXICILLIN\CLAVULANATE POTASSIUM
     Indication: PNEUMONIA
     Dosage: UNK
     Route: 065
  2. CALCIUM [Suspect]
     Active Substance: CALCIUM
     Indication: PRODUCT USED FOR UNKNOWN INDICATION
     Dosage: UNK
     Route: 065
  3. PAROXETINE. [Suspect]
     Active Substance: PAROXETINE
     Indication: ADJUSTMENT DISORDER WITH DEPRESSED MOOD
     Dosage: 20 MG, QD
     Route: 048
     Dates: start: 2015, end: 201704

REACTIONS (1)
  - Polyneuropathy [Not Recovered/Not Resolved]

NARRATIVE: CASE EVENT DATE: 2017
